FAERS Safety Report 18876932 (Version 1)
Quarter: 2021Q1

REPORT INFORMATION
  Report Type: Spontaneous
  Country: US (occurrence: US)
  Receive Date: 20210209
  Receipt Date: 20210209
  Transmission Date: 20210420
  Serious: Yes (Hospitalization)
  Sender: FDA-Public Use
  Company Number: None

PATIENT
  Sex: Male

DRUGS (5)
  1. GABAPENTIN. [Concomitant]
     Active Substance: GABAPENTIN
  2. ASPIRIN. [Concomitant]
     Active Substance: ASPIRIN
  3. HYDROMORPHON [Concomitant]
     Active Substance: HYDROMORPHONE
  4. REPATHA [Suspect]
     Active Substance: EVOLOCUMAB
     Indication: TYPE IIA HYPERLIPIDAEMIA
     Route: 058
     Dates: start: 20201125
  5. MUPIROCIN. [Concomitant]
     Active Substance: MUPIROCIN

REACTIONS (1)
  - Hip arthroplasty [None]
